FAERS Safety Report 22349759 (Version 2)
Quarter: 2023Q2

REPORT INFORMATION
  Report Type: Spontaneous
  Country: PL (occurrence: PL)
  Receive Date: 20230522
  Receipt Date: 20230525
  Transmission Date: 20230721
  Serious: Yes (Death, Life-Threatening, Other)
  Sender: FDA-Public Use
  Company Number: PL-MLMSERVICE-20230510-4280603-1

PATIENT
  Age: 59 Year
  Sex: Male

DRUGS (2)
  1. GENOTROPIN [Suspect]
     Active Substance: SOMATROPIN
     Indication: Weight decreased
     Dosage: 12 MG, ALTERNATE DAY
  2. GENOTROPIN [Suspect]
     Active Substance: SOMATROPIN
     Dosage: 12 MG, EVERY TWO DAYS

REACTIONS (8)
  - Intentional overdose [Fatal]
  - Multiple organ dysfunction syndrome [Fatal]
  - Metabolic acidosis [Fatal]
  - Hyperglycaemia [Fatal]
  - Ketoacidosis [Fatal]
  - Hypokalaemia [Fatal]
  - Blood sodium decreased [Fatal]
  - Off label use [Unknown]
